FAERS Safety Report 4506959-6 (Version None)
Quarter: 2004Q4

REPORT INFORMATION
  Report Type: 
  Country: None (occurrence: None)
  Receive Date: 20041117
  Receipt Date: 20041006
  Transmission Date: 20050328
  Serious: Yes (Other)
  Sender: FDA-Public Use
  Company Number: 209745

PATIENT
  Age: 63 Year
  Sex: Female

DRUGS (10)
  1. HERCEPTIN [Suspect]
     Indication: BREAST CANCER METASTATIC
     Dosage: SEE IMAGE
     Route: 041
     Dates: start: 20030902, end: 20040302
  2. HERCEPTIN [Suspect]
     Indication: BREAST CANCER METASTATIC
     Dosage: SEE IMAGE
     Route: 041
     Dates: start: 20040826, end: 20040826
  3. NAVELBINE [Suspect]
     Indication: BREAST CANCER METASTATIC
     Dosage: 25 MG/M2, INTRAVENOUS DRIP
     Route: 041
     Dates: start: 20030825, end: 20040302
  4. GASTROM (ECABET SODIUM) [Concomitant]
  5. AZULENE SULFONATE SODIUM (SODIUM GUALENATE) [Concomitant]
  6. URSO [Concomitant]
  7. SULPIRIDE (SULPIRIDE) [Concomitant]
  8. HYMECROMON (HYMECROMONE) [Concomitant]
  9. RANITIDINE [Concomitant]
  10. VITANEURIN (VITAMIN B COMPLEX) [Concomitant]

REACTIONS (2)
  - EJECTION FRACTION DECREASED [None]
  - NEUTROPHIL COUNT DECREASED [None]
